FAERS Safety Report 12601955 (Version 1)
Quarter: 2016Q3

REPORT INFORMATION
  Report Type: Spontaneous
  Country: US (occurrence: None)
  Receive Date: 20160727
  Receipt Date: 20160727
  Transmission Date: 20161109
  Serious: No
  Sender: FDA-Public Use
  Company Number: None

PATIENT
  Age: 52 Year
  Sex: Female

DRUGS (9)
  1. WARFARIN [Suspect]
     Active Substance: WARFARIN
     Indication: ANTICOAGULANT THERAPY
     Dosage: 5 MG (EXCEPT 7.5 MG ON MONDAYS| DAILY PO
     Route: 048
  2. CINACALCET [Concomitant]
     Active Substance: CINACALCET
  3. CALCIUM ACETATE. [Concomitant]
     Active Substance: CALCIUM ACETATE
  4. CEPHALEXIN. [Concomitant]
     Active Substance: CEPHALEXIN
  5. GABAPENTIN. [Concomitant]
     Active Substance: GABAPENTIN
  6. LOPERAMIDE [Concomitant]
     Active Substance: LOPERAMIDE
  7. NYSTATIN. [Concomitant]
     Active Substance: NYSTATIN
  8. CARVEDILOL. [Concomitant]
     Active Substance: CARVEDILOL
  9. GENTAMICIN. [Concomitant]
     Active Substance: GENTAMICIN

REACTIONS (1)
  - Catheter site haemorrhage [None]

NARRATIVE: CASE EVENT DATE: 20160627
